FAERS Safety Report 6223389-X (Version None)
Quarter: 2009Q2

REPORT INFORMATION
  Report Type: 
  Country: None (occurrence: None)
  Receive Date: 20090609
  Receipt Date: 20090602
  Transmission Date: 20091009
  Serious: Yes (Hospitalization)
  Sender: FDA-Public Use
  Company Number: 2009SP012092

PATIENT
  Age: 75 Year
  Sex: Male

DRUGS (8)
  1. DESLORATADINE [Suspect]
     Indication: PRURITUS GENERALISED
     Dosage: 5 MG; QD; PO
     Route: 048
     Dates: start: 20080114, end: 20080122
  2. LYRICA [Suspect]
     Indication: NEURALGIA
     Dosage: 150 MG;QD;PO
     Route: 048
     Dates: start: 20080111, end: 20080122
  3. SEROPRAM (CITALOPRAM HYDROBROMIDE) [Suspect]
     Indication: DEPRESSION
     Dosage: 20 MG;QD;PO
     Route: 048
     Dates: start: 20080117, end: 20080122
  4. MORPHINE SULFATE [Suspect]
     Indication: PAIN
     Dosage: 20 MG;QD; PO
     Route: 048
     Dates: start: 20080111, end: 20080122
  5. XATRAL (ALFUZOSIN) [Suspect]
     Indication: DYSURIA
     Dosage: 10 MG;QD; PO
     Route: 048
     Dates: start: 20071220
  6. OFLOXACIN (OFLOXACIN) [Suspect]
     Indication: SINUSITIS
     Dates: start: 20071231, end: 20080118
  7. AUGMENTIN [Suspect]
     Indication: SINUSITIS
     Dates: start: 20071231, end: 20080118
  8. FLUDEX (CON.) [Concomitant]

REACTIONS (9)
  - BRONCHOPNEUMONIA [None]
  - DEPRESSION [None]
  - HAEMOGLOBIN DECREASED [None]
  - NEURALGIA [None]
  - NEUTROPENIA [None]
  - PLATELET COUNT INCREASED [None]
  - PRURITUS GENERALISED [None]
  - RESPIRATORY DISORDER [None]
  - SUPERINFECTION [None]
